FAERS Safety Report 16114551 (Version 4)
Quarter: 2019Q3

REPORT INFORMATION
  Report Type: Spontaneous
  Country: FR (occurrence: FR)
  Receive Date: 20190325
  Receipt Date: 20190705
  Transmission Date: 20191004
  Serious: Yes (Life-Threatening, Hospitalization, Other)
  Sender: FDA-Public Use
  Company Number: FR-PFIZER INC-2019123943

PATIENT
  Age: 56 Year
  Sex: Female
  Weight: 97 kg

DRUGS (9)
  1. SALAZOPYRINE [Suspect]
     Active Substance: SULFASALAZINE
     Dosage: 1000 MG, 2X/DAY (MORNING AND EVENING)
     Route: 048
     Dates: start: 20190110, end: 20190116
  2. VERAPAMIL HYDROCHLOIRDE [Concomitant]
     Active Substance: VERAPAMIL HYDROCHLORIDE
     Indication: HYPERTENSION
     Dosage: 240 MG, UNK
     Dates: start: 1995, end: 20190130
  3. PREDNISONE. [Concomitant]
     Active Substance: PREDNISONE
     Indication: SPONDYLOARTHROPATHY
     Dosage: 20 MG, 1X/DAY
     Route: 048
     Dates: start: 20190130, end: 20190131
  4. PARACETAMOL [Concomitant]
     Active Substance: ACETAMINOPHEN
     Dosage: 1 G, UNK
     Dates: start: 2009
  5. SALAZOPYRINE [Suspect]
     Active Substance: SULFASALAZINE
     Indication: SPONDYLOARTHROPATHY
     Dosage: 500 MG, 1X/DAY
     Route: 048
     Dates: start: 20190103, end: 20190109
  6. SALAZOPYRINE [Suspect]
     Active Substance: SULFASALAZINE
     Dosage: 1000 MG, 4X/DAY
     Route: 048
     Dates: start: 20190124, end: 20190131
  7. DOLIPRANE [Concomitant]
     Active Substance: ACETAMINOPHEN
     Indication: SPONDYLOARTHROPATHY
     Dosage: 1 G, UNK
     Dates: start: 2009
  8. ZAMUDOL [Concomitant]
     Active Substance: TRAMADOL HYDROCHLORIDE
     Indication: SPONDYLOARTHROPATHY
     Dosage: 50 MG, 2X/DAY
     Route: 048
     Dates: start: 2018
  9. SALAZOPYRINE [Suspect]
     Active Substance: SULFASALAZINE
     Dosage: 1000 MG, UNK (2 IN MORNING AND 1 IN EVENING)
     Route: 048
     Dates: start: 20190117, end: 20190123

REACTIONS (11)
  - Keratitis [Not Recovered/Not Resolved]
  - Toxic epidermal necrolysis [Recovering/Resolving]
  - Hepatocellular injury [Unknown]
  - Amylase increased [Recovered/Resolved]
  - Decubitus ulcer [Not Recovered/Not Resolved]
  - Peripheral sensorimotor neuropathy [Not Recovered/Not Resolved]
  - Dry eye [Unknown]
  - Loss of personal independence in daily activities [Unknown]
  - Photophobia [Not Recovered/Not Resolved]
  - Fatigue [Unknown]
  - Conjunctivitis [Not Recovered/Not Resolved]

NARRATIVE: CASE EVENT DATE: 20190124
